APPROVED DRUG PRODUCT: KEMADRIN
Active Ingredient: PROCYCLIDINE HYDROCHLORIDE
Strength: 5MG
Dosage Form/Route: TABLET;ORAL
Application: N009818 | Product #003
Applicant: MONARCH PHARMACEUTICALS LLC
Approved: Approved Prior to Jan 1, 1982 | RLD: No | RS: No | Type: DISCN